FAERS Safety Report 6750203-6 (Version None)
Quarter: 2010Q2

REPORT INFORMATION
  Report Type: 
  Country: None (occurrence: None)
  Receive Date: 20100601
  Receipt Date: 20100521
  Transmission Date: 20101027
  Serious: Yes (Other)
  Sender: FDA-Public Use
  Company Number: JP-PFIZER INC-2010055385

PATIENT
  Age: 75 Year
  Sex: Female
  Weight: 43 kg

DRUGS (8)
  1. LIPITOR [Suspect]
     Indication: BLOOD CHOLESTEROL
     Dosage: 10 MG, 1X/DAY
     Dates: start: 20090928
  2. LASIX [Concomitant]
     Dosage: UNK
     Route: 048
     Dates: start: 19960321
  3. MERCAZOLE [Concomitant]
     Dosage: UNK
     Route: 048
     Dates: start: 19951115
  4. VITAMEDIN CAPSULE [Concomitant]
     Route: 048
     Dates: start: 19951101
  5. UBIDECARENONE [Concomitant]
     Route: 048
     Dates: start: 19951101
  6. CARTEOLOL HYDROCHLORIDE [Concomitant]
     Dosage: UNK
     Route: 048
     Dates: start: 19951115
  7. GRANDAXIN [Concomitant]
     Dosage: UNK
     Route: 048
     Dates: start: 19951115
  8. FRANDOL [Concomitant]
     Route: 062
     Dates: start: 19951101

REACTIONS (2)
  - BLOOD CHOLESTEROL INCREASED [None]
  - LOW DENSITY LIPOPROTEIN INCREASED [None]
